FAERS Safety Report 8573812-0 (Version None)
Quarter: 2012Q3

REPORT INFORMATION
  Report Type: 
  Country: None (occurrence: None)
  Receive Date: 20120806
  Receipt Date: 20110721
  Transmission Date: 20120928
  Serious: No
  Sender: FDA-Public Use
  Company Number: US-GLAXOSMITHKLINE-A0937562A

PATIENT
  Age: 68 Year
  Sex: Female

DRUGS (8)
  1. SPIRIVA [Concomitant]
  2. FOSAMAX [Concomitant]
  3. LIPITOR [Concomitant]
  4. PROVENTIL-HFA [Concomitant]
  5. FLUTICASONE PROPIONATE [Suspect]
     Indication: CHRONIC OBSTRUCTIVE PULMONARY DISEASE
     Dosage: 2PUFF TWICE PER DAY
     Route: 055
     Dates: start: 20110601
  6. CALCIUM [Concomitant]
  7. M.V.I. [Concomitant]
  8. PREDNISONE [Concomitant]

REACTIONS (1)
  - COUGH [None]
